FAERS Safety Report 4804107-6 (Version None)
Quarter: 2005Q4

REPORT INFORMATION
  Report Type: 
  Country: None (occurrence: None)
  Receive Date: 20051014
  Receipt Date: 20051004
  Transmission Date: 20060501
  Serious: Yes (Hospitalization)
  Sender: FDA-Public Use
  Company Number: 200508283

PATIENT
  Age: 70 Year
  Sex: Male
  Weight: 81.6475 kg

DRUGS (8)
  1. BOTOX [Suspect]
     Indication: FACIAL SPASM
     Dates: end: 20041029
  2. BOTOX [Suspect]
     Indication: FACIAL SPASM
     Dosage: 50 UNITS ONCE IM
     Route: 042
     Dates: start: 20041029, end: 20041029
  3. BOTOX [Suspect]
     Indication: FACIAL SPASM
     Dosage: 40 UNITS ONCE IM
     Route: 030
     Dates: start: 20050422, end: 20050422
  4. BOTOX [Suspect]
     Indication: FACIAL SPASM
     Dosage: 35 UNITS ONCE IM
     Route: 030
     Dates: start: 20050826, end: 20050826
  5. AVALIDE [Concomitant]
  6. ATENOLOL [Concomitant]
  7. ASPIRIN [Concomitant]
  8. ALLOPURINOL [Concomitant]

REACTIONS (29)
  - AMNESIA [None]
  - ANXIETY [None]
  - APHONIA [None]
  - DEHYDRATION [None]
  - DISORIENTATION [None]
  - DIZZINESS [None]
  - DRY MOUTH [None]
  - DYSPHAGIA [None]
  - EYELID FUNCTION DISORDER [None]
  - FATIGUE [None]
  - GINGIVAL BLEEDING [None]
  - HALLUCINATION [None]
  - HEARING IMPAIRED [None]
  - HYPERHIDROSIS [None]
  - INFLUENZA LIKE ILLNESS [None]
  - MALAISE [None]
  - MUSCULAR WEAKNESS [None]
  - NAUSEA [None]
  - PARAESTHESIA [None]
  - PYREXIA [None]
  - RED BLOOD CELL SEDIMENTATION RATE INCREASED [None]
  - SPEECH DISORDER [None]
  - STOMATITIS [None]
  - TINNITUS [None]
  - TREMOR [None]
  - VERTIGO [None]
  - VIRAL INFECTION [None]
  - VISION BLURRED [None]
  - WEIGHT DECREASED [None]
